FAERS Safety Report 8662677 (Version 2)
Quarter: 2012Q4

REPORT INFORMATION
  Report Type: 
  Country: US (occurrence: US)
  Receive Date: 20120712
  Receipt Date: 20120904
  Transmission Date: 20130627
  Serious: Yes (Other)
  Sender: FDA-Public Use
  Company Number: US-PFIZER INC-2012164358

PATIENT
  Age: 59 Year
  Sex: Female
  Weight: 83.9 kg

DRUGS (17)
  1. LYRICA [Suspect]
     Indication: NEURALGIA
     Dosage: 75 mg, 3x/day
     Route: 048
     Dates: start: 20110809
  2. LYRICA [Suspect]
     Dosage: 50 mg, 3x/day
     Route: 048
     Dates: start: 2012, end: 2012
  3. LYRICA [Suspect]
     Dosage: 50 mg, 2x/day
     Route: 048
     Dates: start: 2012, end: 2012
  4. LYRICA [Suspect]
     Dosage: 50 mg, 1x/day
     Route: 048
     Dates: start: 2012, end: 20120626
  5. LISINOPRIL [Concomitant]
     Indication: HYPERTENSION
     Dosage: 20 mg, 1x/day
  6. FUROSEMIDE [Concomitant]
     Indication: HYPERTENSION
     Dosage: UNK
  7. LEXAPRO [Concomitant]
     Dosage: 10 mg, 1x/day
  8. MOBIC [Concomitant]
     Indication: MULTIPLE SCLEROSIS
     Dosage: 7.5 mg, 2x/day
  9. NEURONTIN [Concomitant]
     Dosage: UNK
  10. FLEXERIL [Concomitant]
     Dosage: 10 mg, 3x/day, as needed
  11. DILAUDID [Concomitant]
     Dosage: UNK
  12. PERCOCET [Concomitant]
     Indication: PAIN
     Dosage: UNK, 5/325, 1 to 2 b.i.d. to t.i.d. p.r.n
  13. LASIX [Concomitant]
     Dosage: 80 mg, daily
  14. TYLENOL [Concomitant]
     Dosage: 325 mg, as needed
  15. ACETYLSALICYLIC ACID [Concomitant]
     Dosage: 325 mg, daily
  16. TYSABRI [Concomitant]
     Dosage: 300 mg, every 28 days
     Route: 042
  17. VITAMIN B12 [Concomitant]
     Dosage: UNK

REACTIONS (11)
  - Fluid retention [Recovering/Resolving]
  - Lymphoedema [Unknown]
  - Oedema peripheral [Recovered/Resolved]
  - Pain in extremity [Unknown]
  - Neck pain [Unknown]
  - Back pain [Unknown]
  - Arthralgia [Unknown]
  - Muscle spasms [Unknown]
  - Muscle spasticity [Unknown]
  - Urine output decreased [Unknown]
  - Drug ineffective [Unknown]
